FAERS Safety Report 13406756 (Version 1)
Quarter: 2017Q2

REPORT INFORMATION
  Report Type: Spontaneous
  Country: US (occurrence: US)
  Receive Date: 20170405
  Receipt Date: 20170405
  Transmission Date: 20170830
  Serious: No
  Sender: FDA-Public Use
  Company Number: US-009507513-1704USA001653

PATIENT
  Sex: Female

DRUGS (1)
  1. ZEPATIER [Suspect]
     Active Substance: ELBASVIR\GRAZOPREVIR
     Indication: HEPATITIS C
     Dosage: 1 TABLET, DAILY
     Route: 048
     Dates: start: 20170228

REACTIONS (5)
  - Vomiting [Recovering/Resolving]
  - Depressed mood [Recovering/Resolving]
  - Fatigue [Recovering/Resolving]
  - Nausea [Recovering/Resolving]
  - Crying [Recovering/Resolving]

NARRATIVE: CASE EVENT DATE: 2017
